FAERS Safety Report 15105443 (Version 1)
Quarter: 2018Q3

REPORT INFORMATION
  Report Type: Report from Study
  Country: SG (occurrence: SG)
  Receive Date: 20180704
  Receipt Date: 20180704
  Transmission Date: 20181010
  Serious: Yes (Hospitalization)
  Sender: FDA-Public Use
  Company Number: SG-TEVA-2018-SG-919186

PATIENT
  Age: 14 Year

DRUGS (1)
  1. NIFEDIPINE. [Suspect]
     Active Substance: NIFEDIPINE
     Indication: INTENTIONAL OVERDOSE
     Dosage: SUSTAINED RELEASE FORMULATION
     Route: 048

REACTIONS (3)
  - Toxicity to various agents [Unknown]
  - No adverse event [Unknown]
  - Intentional overdose [Unknown]
